FAERS Safety Report 7209001-1 (Version None)
Quarter: 2010Q4

REPORT INFORMATION
  Report Type: 
  Country: None (occurrence: None)
  Receive Date: 20101222
  Receipt Date: 20101207
  Transmission Date: 20110411
  Serious: Yes (Other)
  Sender: FDA-Public Use
  Company Number: AUR-APL-2010-03160

PATIENT
  Age: 63 Year
  Sex: Female

DRUGS (3)
  1. METFORMIN HCL [Suspect]
     Indication: DIABETES MELLITUS
  2. GLIMEPIRIDE [Suspect]
     Indication: DIABETES MELLITUS
  3. INSULIN DETEMIR [Suspect]
     Indication: DIABETES MELLITUS

REACTIONS (3)
  - DIABETES MELLITUS [None]
  - DISEASE PROGRESSION [None]
  - HYPOGLYCAEMIA [None]
